FAERS Safety Report 20168680 (Version 2)
Quarter: 2022Q1

REPORT INFORMATION
  Report Type: Spontaneous
  Country: IT (occurrence: IT)
  Receive Date: 20211210
  Receipt Date: 20220129
  Transmission Date: 20220423
  Serious: Yes (Hospitalization, Other)
  Sender: FDA-Public Use
  Company Number: IT-GLAXOSMITHKLINE-IT2021GSK238612

PATIENT
  Sex: Female
  Weight: 1.64 kg

DRUGS (3)
  1. AMOXICILLIN [Suspect]
     Active Substance: AMOXICILLIN
     Indication: Antibiotic therapy
     Dosage: 2 GRAM, ONCE A DAY (1 G, BID)
     Route: 064
  2. TAZOBACTAM [Suspect]
     Active Substance: TAZOBACTAM
     Indication: Antibiotic therapy
     Dosage: UNK
     Route: 064
  3. PIPERACILLIN [Suspect]
     Active Substance: PIPERACILLIN
     Indication: Antibiotic therapy
     Dosage: UNK
     Route: 064

REACTIONS (4)
  - Neonatal respiratory distress [Unknown]
  - Immature respiratory system [Unknown]
  - Premature baby [Unknown]
  - Foetal exposure during pregnancy [Unknown]
